FAERS Safety Report 5167429-8 (Version None)
Quarter: 2006Q4

REPORT INFORMATION
  Report Type: 
  Country: None (occurrence: None)
  Receive Date: 20061130
  Receipt Date: 20061120
  Transmission Date: 20070319
  Serious: Yes (Hospitalization)
  Sender: FDA-Public Use
  Company Number: 2006-02950

PATIENT
  Age: 68 Year
  Sex: Male
  Weight: 68 kg

DRUGS (4)
  1. VELCADE [Suspect]
     Indication: MULTIPLE MYELOMA
     Dosage: 1.30 MG/M2
     Dates: start: 20060725
  2. TENORMIN [Concomitant]
  3. SIMVASTATIN [Concomitant]
  4. ACENTERINE (ACETYLSALICYLIC ACID) [Concomitant]

REACTIONS (4)
  - DECREASED APPETITE [None]
  - FAECALOMA [None]
  - GASTROINTESTINAL HYPOMOTILITY [None]
  - OESOPHAGITIS [None]
